FAERS Safety Report 9650089 (Version 1)
Quarter: 2013Q4

REPORT INFORMATION
  Report Type: Spontaneous
  Country: US (occurrence: US)
  Receive Date: 20131028
  Receipt Date: 20131028
  Transmission Date: 20140711
  Serious: No
  Sender: FDA-Public Use
  Company Number: US-PURDUE-USA-2012-0096835

PATIENT
  Sex: Male

DRUGS (3)
  1. OXYCONTIN (NDA 22-272) [Suspect]
     Indication: PAIN
     Dosage: 80 MG, UNK
     Route: 048
  2. OXYCONTIN (NDA 22-272) [Suspect]
     Indication: OSTEOARTHRITIS
  3. OXYCODONE HCL IR CAPSULES [Suspect]
     Indication: BREAKTHROUGH PAIN
     Route: 048

REACTIONS (3)
  - Breakthrough pain [Unknown]
  - Euphoric mood [Unknown]
  - Somnolence [Unknown]
